FAERS Safety Report 13869428 (Version 2)
Quarter: 2017Q4

REPORT INFORMATION
  Report Type: Report from Study
  Country: JP (occurrence: JP)
  Receive Date: 20170815
  Receipt Date: 20171005
  Transmission Date: 20180320
  Serious: Yes (Hospitalization)
  Sender: FDA-Public Use
  Company Number: JP-ACTELION-A-CH2017-157830

PATIENT
  Age: 48 Year
  Sex: Female

DRUGS (8)
  1. OPSUMIT [Suspect]
     Active Substance: MACITENTAN
     Indication: PULMONARY ARTERIAL HYPERTENSION
     Dosage: 5 MG, OD
     Route: 048
     Dates: start: 20160215, end: 20160314
  2. REVATIO [Concomitant]
     Active Substance: SILDENAFIL CITRATE
  3. DIART [Concomitant]
     Active Substance: AZOSEMIDE
  4. FAMOTIDINE DCI [Concomitant]
     Active Substance: FAMOTIDINE
  5. HICEE [Concomitant]
  6. ALDACTONE A [Concomitant]
     Active Substance: SPIRONOLACTONE
  7. FERROUS CITRATE NA [Concomitant]
     Active Substance: SODIUM FERROUS CITRATE
  8. OXYGEN. [Concomitant]
     Active Substance: OXYGEN

REACTIONS (4)
  - Haematocrit decreased [Recovered/Resolved]
  - Haemoglobin decreased [Recovered/Resolved]
  - Epistaxis [Recovered/Resolved]
  - Red blood cell count decreased [Recovered/Resolved]

NARRATIVE: CASE EVENT DATE: 20160314
